FAERS Safety Report 19068651 (Version 1)
Quarter: 2021Q1

REPORT INFORMATION
  Report Type: Spontaneous
  Country: US (occurrence: US)
  Receive Date: 20210329
  Receipt Date: 20210329
  Transmission Date: 20210420
  Serious: Yes (Hospitalization)
  Sender: FDA-Public Use
  Company Number: US-TEVA-2021-US-1893813

PATIENT
  Age: 6 Year
  Sex: Female

DRUGS (1)
  1. CARBOPLATIN. [Suspect]
     Active Substance: CARBOPLATIN
     Indication: GLIOMA
     Dosage: SCHEDULED TO RECEIVE CHEMOTHERAPY WITH HIGH?DOSE CARBOPLATIN 560 MG/M2 EVERY 28 DAYS FOR 13 CYCLES
     Route: 065

REACTIONS (2)
  - Haematuria [Recovered/Resolved]
  - Hydronephrosis [Unknown]
